FAERS Safety Report 23292259 (Version 1)
Quarter: 2023Q4

REPORT INFORMATION
  Report Type: Spontaneous
  Country: US (occurrence: None)
  Receive Date: 20231212
  Receipt Date: 20231212
  Transmission Date: 20240109
  Serious: Yes (Death, Hospitalization)
  Sender: FDA-Public Use
  Company Number: None

PATIENT
  Age: 67 Year
  Sex: Female

DRUGS (1)
  1. OPSUMIT [Suspect]
     Active Substance: MACITENTAN
     Indication: Pulmonary hypertension
     Dosage: FREQUENCY : DAILY;?
     Route: 048
     Dates: start: 20200825, end: 20231126

REACTIONS (7)
  - Culture urine positive [None]
  - Bradycardia [None]
  - Asthenia [None]
  - Hypophagia [None]
  - Hypotension [None]
  - Renal failure [None]
  - Enterococcal infection [None]

NARRATIVE: CASE EVENT DATE: 20231126
